FAERS Safety Report 8598329-9 (Version None)
Quarter: 2012Q3

REPORT INFORMATION
  Report Type: 
  Country: None (occurrence: None)
  Receive Date: 20120816
  Receipt Date: 20120807
  Transmission Date: 20120928
  Serious: Yes (Other)
  Sender: FDA-Public Use
  Company Number: US-SANOFI-AVENTIS-2012SA057499

PATIENT
  Sex: Female

DRUGS (4)
  1. WARFARIN SODIUM [Concomitant]
     Dates: start: 20120101, end: 20120101
  2. LOVENOX [Suspect]
     Route: 058
     Dates: start: 20120601
  3. LOVENOX [Suspect]
     Route: 058
     Dates: start: 20120401
  4. LOVENOX [Suspect]
     Route: 058
     Dates: start: 20120301

REACTIONS (3)
  - CEREBRAL THROMBOSIS [None]
  - CONTUSION [None]
  - HAEMATOMA [None]
